FAERS Safety Report 5263515-2 (Version None)
Quarter: 2007Q1

REPORT INFORMATION
  Report Type: 
  Country: None (occurrence: None)
  Receive Date: 20070312
  Receipt Date: 20070312
  Transmission Date: 20070707
  Serious: No
  Sender: FDA-Public Use
  Company Number: None

PATIENT
  Age: 52 Year
  Sex: Female

DRUGS (2)
  1. PRILOSEC [Suspect]
     Dosage: CAPSULE, DELAYED RELEASE  BOTTLE
  2. PRILOSEC OTC [Suspect]
     Dosage: TABLET  BLISTER PACK PLASTIC BAG W/SLIDE LOCK

REACTIONS (2)
  - DRUG DISPENSING ERROR [None]
  - MEDICATION ERROR [None]
